FAERS Safety Report 9810776 (Version 1)
Quarter: 2014Q1

REPORT INFORMATION
  Report Type: Spontaneous
  Country: US (occurrence: US)
  Receive Date: 20140110
  Receipt Date: 20140110
  Transmission Date: 20141002
  Serious: Yes (Hospitalization)
  Sender: FDA-Public Use
  Company Number: US-SANOFI-AVENTIS-2012SA090347

PATIENT
  Age: 69 Year
  Sex: Male
  Weight: 83.5 kg

DRUGS (20)
  1. PLAVIX [Suspect]
     Indication: PRODUCT USED FOR UNKNOWN INDICATION
     Route: 065
     Dates: start: 20100222
  2. WARFARIN SODIUM [Suspect]
     Indication: PRODUCT USED FOR UNKNOWN INDICATION
     Route: 065
     Dates: start: 20100222, end: 20100404
  3. ASPIRIN [Suspect]
     Indication: PRODUCT USED FOR UNKNOWN INDICATION
     Route: 065
     Dates: start: 20100222
  4. DILTIAZEM [Suspect]
     Indication: PRODUCT USED FOR UNKNOWN INDICATION
     Route: 065
     Dates: start: 20091014, end: 20100404
  5. ALLOPURINOL [Concomitant]
     Dates: start: 2009
  6. QVAR [Concomitant]
     Dates: start: 20070917
  7. CITALOPRAM [Concomitant]
     Dates: start: 20091014
  8. BUPROPION [Concomitant]
     Dates: start: 20091017
  9. DIGOXIN [Concomitant]
     Dates: start: 20070730, end: 20100404
  10. FINASTERIDE [Concomitant]
     Dates: start: 20090306
  11. HYDRALAZINE [Concomitant]
     Dates: start: 20090529, end: 20100404
  12. LISINOPRIL [Concomitant]
     Dates: start: 2009
  13. ROSUVASTATIN [Concomitant]
     Dates: start: 20080830
  14. TAMSULOSIN [Concomitant]
     Dates: start: 20080203
  15. SPIRIVA [Concomitant]
     Dates: start: 20080521
  16. HYDROCHLOROTHIAZIDE [Concomitant]
     Dates: start: 20090526, end: 20100404
  17. ISOSORBIDE MONONITRATE [Concomitant]
     Dates: start: 20090416
  18. ALENDRONIC ACID [Concomitant]
     Dates: start: 20071030
  19. COLCHICINE [Concomitant]
     Dates: start: 20070306
  20. BLINDED THERAPY [Concomitant]
     Dates: start: 20090309

REACTIONS (1)
  - Gastrointestinal haemorrhage [Recovered/Resolved]
